FAERS Safety Report 7602895-7 (Version None)
Quarter: 2011Q3

REPORT INFORMATION
  Report Type: 
  Country: None (occurrence: None)
  Receive Date: 20110712
  Receipt Date: 20110704
  Transmission Date: 20111222
  Serious: Yes (Death, Hospitalization, Other)
  Sender: FDA-Public Use
  Company Number: ES-JNJFOC-20110104175

PATIENT
  Age: 72 Year
  Sex: Female
  Weight: 81 kg

DRUGS (6)
  1. TRABECTEDIN [Suspect]
     Indication: PRODUCT USED FOR UNKNOWN INDICATION
     Dosage: CYCLE 2 TOTAL DOSE 1.98MG
     Route: 042
     Dates: start: 20101201
  2. DOXORUBICIN HYDROCHLORIDE [Suspect]
     Indication: PRODUCT USED FOR UNKNOWN INDICATION
     Route: 042
     Dates: start: 20101028, end: 20101201
  3. DEXAMETHASONE [Concomitant]
     Indication: PREMEDICATION
     Route: 042
  4. GRANISETRON [Concomitant]
     Indication: PREMEDICATION
     Route: 065
  5. DEXAMETHASONE [Concomitant]
     Dosage: 3 DAYS
     Route: 048
  6. TRABECTEDIN [Suspect]
     Dosage: CYCLE 1
     Route: 042
     Dates: start: 20101028

REACTIONS (6)
  - BLOOD CREATININE INCREASED [None]
  - CARDIAC FAILURE CONGESTIVE [None]
  - DIARRHOEA [None]
  - PANCYTOPENIA [None]
  - ASTHENIA [None]
  - COGNITIVE DISORDER [None]
